FAERS Safety Report 4568746-2 (Version None)
Quarter: 2005Q1

REPORT INFORMATION
  Report Type: 
  Country: None (occurrence: None)
  Receive Date: 20050202
  Receipt Date: 20041207
  Transmission Date: 20050727
  Serious: Yes (Hospitalization, Disabling)
  Sender: FDA-Public Use
  Company Number: US-MERCK-0412USA00892

PATIENT
  Age: 69 Year
  Sex: Female
  Weight: 65 kg

DRUGS (10)
  1. VITAMINS (UNSPECIFIED) [Concomitant]
     Route: 065
  2. GASTROINTESTINAL PREPARATIONS (UNSPECIFIED) [Concomitant]
     Route: 065
  3. CALCIUM (UNSPECIFIED) [Concomitant]
     Route: 065
  4. VIOXX [Suspect]
     Indication: OSTEOARTHRITIS
     Route: 048
     Dates: start: 20010101, end: 20040901
  5. VIOXX [Suspect]
     Route: 048
     Dates: start: 20021030
  6. NEXIUM [Concomitant]
     Route: 065
  7. SYNTHROID [Concomitant]
     Route: 065
  8. ASPIRIN [Concomitant]
     Route: 065
  9. PREMPRO [Concomitant]
     Route: 065
  10. ASCORBIC ACID [Concomitant]
     Route: 065

REACTIONS (10)
  - BACK PAIN [None]
  - COUGH [None]
  - GASTRIC ULCER [None]
  - GYNAECOLOGICAL EXAMINATION ABNORMAL [None]
  - HELICOBACTER INFECTION [None]
  - LIPIDS INCREASED [None]
  - MUSCLE SPASMS [None]
  - MUSCULOSKELETAL DISCOMFORT [None]
  - NASOPHARYNGITIS [None]
  - UPPER GASTROINTESTINAL HAEMORRHAGE [None]
